FAERS Safety Report 24836835 (Version 2)
Quarter: 2025Q1

REPORT INFORMATION
  Report Type: Spontaneous
  Country: US (occurrence: US)
  Receive Date: 20250113
  Receipt Date: 20250203
  Transmission Date: 20250408
  Serious: No
  Sender: IPSEN BIOPHARMACEUTICALS, INC.
  Company Number: US-IPSEN Group, Research and Development-2025-00496

PATIENT
  Age: 70 Year
  Sex: Female
  Weight: 55.4 kg

DRUGS (1)
  1. IQIRVO [Suspect]
     Active Substance: ELAFIBRANOR
     Indication: Primary biliary cholangitis
     Route: 048
     Dates: start: 20241105, end: 20241216

REACTIONS (4)
  - Abdominal pain upper [Recovered/Resolved with Sequelae]
  - Bone pain [Recovered/Resolved with Sequelae]
  - Insomnia [Recovered/Resolved with Sequelae]
  - Hypokinesia [Recovered/Resolved with Sequelae]

NARRATIVE: CASE EVENT DATE: 20241201
